FAERS Safety Report 24673182 (Version 1)
Quarter: 2024Q4

REPORT INFORMATION
  Report Type: Spontaneous
  Country: US (occurrence: US)
  Receive Date: 20241128
  Receipt Date: 20241128
  Transmission Date: 20250115
  Serious: No
  Sender: IBSA INSTITUT BIOCHIMIQUE
  Company Number: US-IBSA PHARMA INC.-2023IBS000833

PATIENT

DRUGS (3)
  1. TIROSINT [Suspect]
     Active Substance: LEVOTHYROXINE SODIUM
     Indication: Hypothyroidism
     Dosage: 25 MICROGRAM, QD
     Route: 048
     Dates: start: 20230601
  2. ADVAIR HFA [Concomitant]
     Active Substance: FLUTICASONE PROPIONATE\SALMETEROL XINAFOATE
     Indication: Product used for unknown indication
     Dosage: UNK
  3. LIOTHYRONINE [Concomitant]
     Active Substance: LIOTHYRONINE
     Indication: Product used for unknown indication

REACTIONS (5)
  - Weight increased [Unknown]
  - Headache [Unknown]
  - Insomnia [Unknown]
  - Irritability [Unknown]
  - Arthralgia [Unknown]

NARRATIVE: CASE EVENT DATE: 20230101
